FAERS Safety Report 5921225-X (Version None)
Quarter: 2008Q4

REPORT INFORMATION
  Report Type: 
  Country: None (occurrence: None)
  Receive Date: 20081016
  Receipt Date: 20081010
  Transmission Date: 20090506
  Serious: Yes (Hospitalization)
  Sender: FDA-Public Use
  Company Number: FR-B.I. PHARMACEUTICALS,INC./RIDGEFIELD-2008-FF-00726FF

PATIENT
  Sex: Male

DRUGS (6)
  1. MICARDIS [Suspect]
     Route: 048
  2. TEMERIT [Concomitant]
     Dosage: 10MG
     Route: 048
     Dates: start: 20080801, end: 20080901
  3. ISOPTIN [Concomitant]
     Route: 048
     Dates: start: 20080901, end: 20080901
  4. METFORMIN HCL [Concomitant]
     Route: 048
     Dates: start: 20060101
  5. DIAMICRON [Concomitant]
     Dates: start: 20060101
  6. TAHOR [Concomitant]
     Route: 048

REACTIONS (1)
  - HAEMOLYTIC ANAEMIA [None]
